FAERS Safety Report 6426758-8 (Version None)
Quarter: 2009Q4

REPORT INFORMATION
  Report Type: 
  Country: None (occurrence: None)
  Receive Date: 20091030
  Receipt Date: 20091025
  Transmission Date: 20100525
  Serious: Yes (Hospitalization)
  Sender: FDA-Public Use
  Company Number: WAES 0812USA00789

PATIENT
  Age: 69 Year
  Sex: Male

DRUGS (6)
  1. TAB MK-0431 [Suspect]
     Indication: TYPE 2 DIABETES MELLITUS
     Dosage: 25 MG/DAILY PO ; 25 MG/DAILY PO
     Route: 048
     Dates: start: 20080627, end: 20080812
  2. TAB MK-0431 [Suspect]
     Indication: TYPE 2 DIABETES MELLITUS
     Dosage: 25 MG/DAILY PO ; 25 MG/DAILY PO
     Route: 048
     Dates: start: 20080814, end: 20081002
  3. TAB PLACEBO (UNSPECIFIED) [Suspect]
     Dosage: .5 TAB/DAILY PO ; 1 TAB/DAILY PO
     Route: 048
     Dates: start: 20080627, end: 20080717
  4. TAB PLACEBO (UNSPECIFIED) [Suspect]
     Dosage: .5 TAB/DAILY PO ; 1 TAB/DAILY PO
     Route: 048
     Dates: start: 20080718, end: 20081002
  5. TAB PLACEBO BASELINE THERAPY [Suspect]
     Dosage: 1.5 TAB/DAILY PO
     Route: 048
     Dates: start: 20080613, end: 20080626
  6. AMLOPRES [Concomitant]

REACTIONS (1)
  - PSORIASIS [None]
